FAERS Safety Report 6544567-6 (Version None)
Quarter: 2010Q1

REPORT INFORMATION
  Report Type: 
  Country: None (occurrence: None)
  Receive Date: 20100120
  Receipt Date: 20100120
  Transmission Date: 20100710
  Serious: Yes (Other)
  Sender: FDA-Public Use
  Company Number: None

PATIENT
  Sex: Female
  Weight: 74.8435 kg

DRUGS (1)
  1. FEMARA [Suspect]
     Indication: BREAST CANCER
     Dosage: ONE TABLET DAILY PO
     Route: 048
     Dates: start: 20040415, end: 20090415

REACTIONS (6)
  - AGEUSIA [None]
  - ANOSMIA [None]
  - BURSITIS [None]
  - OSTEOARTHRITIS [None]
  - PAIN [None]
  - POOR QUALITY SLEEP [None]
